FAERS Safety Report 6542366-2 (Version None)
Quarter: 2010Q1

REPORT INFORMATION
  Report Type: 
  Country: None (occurrence: None)
  Receive Date: 20100114
  Receipt Date: 20100114
  Transmission Date: 20100710
  Serious: Yes (Hospitalization)
  Sender: FDA-Public Use
  Company Number: None

PATIENT
  Age: 45 Year
  Sex: Female
  Weight: 65.4 kg

DRUGS (1)
  1. INTERFERON BETA-1B 0.25 MG BAYER HEALTHCARE PHARMACEUTICALS [Suspect]
     Indication: MULTIPLE SCLEROSIS
     Dosage: 0.25 MG EVERY OTHER DAY SQ
     Route: 058
     Dates: start: 20040801, end: 20091219

REACTIONS (7)
  - CELLULITIS [None]
  - ERYTHEMA [None]
  - FAT NECROSIS [None]
  - INJECTION SITE INDURATION [None]
  - MUSCLE NECROSIS [None]
  - PAIN [None]
  - TENDERNESS [None]
